FAERS Safety Report 4859923-1 (Version None)
Quarter: 2005Q4

REPORT INFORMATION
  Report Type: 
  Country: None (occurrence: None)
  Receive Date: 20051219
  Receipt Date: 20050722
  Transmission Date: 20060501
  Serious: No
  Sender: FDA-Public Use
  Company Number: US-BRISTOL-MYERS SQUIBB COMPANY-13047428

PATIENT
  Age: 58 Year
  Sex: Female
  Weight: 110 kg

DRUGS (2)
  1. DOVONEX [Suspect]
     Indication: PSORIASIS
     Route: 061
  2. LOTENSIN [Concomitant]

REACTIONS (1)
  - DRUG INEFFECTIVE [None]
